FAERS Safety Report 13151041 (Version 1)
Quarter: 2017Q1

REPORT INFORMATION
  Report Type: Report from Study
  Country: US (occurrence: US)
  Receive Date: 20170124
  Receipt Date: 20170124
  Transmission Date: 20170428
  Serious: No
  Sender: FDA-Public Use
  Company Number: US-AMGEN-USASL2017002647

PATIENT
  Sex: Female

DRUGS (1)
  1. REPATHA [Suspect]
     Active Substance: EVOLOCUMAB
     Indication: PRODUCT USED FOR UNKNOWN INDICATION
     Dosage: 140 MG, TWICE PER MONTH
     Route: 065
     Dates: start: 201604

REACTIONS (4)
  - Pain [Unknown]
  - Injection site bruising [Unknown]
  - Pain in extremity [Unknown]
  - Burning sensation [Unknown]
